FAERS Safety Report 5498211-X (Version None)
Quarter: 2007Q4

REPORT INFORMATION
  Report Type: 
  Country: None (occurrence: None)
  Receive Date: 20071025
  Receipt Date: 20070412
  Transmission Date: 20080405
  Serious: No
  Sender: FDA-Public Use
  Company Number: A0647010A

PATIENT
  Age: 87 Year
  Sex: Female

DRUGS (6)
  1. ADVAIR DISKUS 100/50 [Suspect]
     Indication: ASTHMA
     Dosage: 1PUFF TWICE PER DAY
     Route: 055
     Dates: start: 20070301
  2. PREDNISONE [Suspect]
     Indication: ASTHMA
     Dosage: 60MG PER DAY
     Route: 048
     Dates: end: 20070301
  3. SYNTHROID [Concomitant]
  4. PROCARDIA XL [Concomitant]
  5. EVISTA [Concomitant]
  6. XALATAN [Concomitant]

REACTIONS (6)
  - ABDOMINAL PAIN UPPER [None]
  - CHANGE OF BOWEL HABIT [None]
  - CONSTIPATION [None]
  - DYSPHONIA [None]
  - PHARYNGEAL OEDEMA [None]
  - TREMOR [None]
